FAERS Safety Report 16201662 (Version 1)
Quarter: 2019Q2

REPORT INFORMATION
  Report Type: Spontaneous
  Country: US (occurrence: US)
  Receive Date: 20190312
  Receipt Date: 20190312
  Transmission Date: 20190711
  Serious: Yes (Life-Threatening)
  Sender: FDA-Public Use
  Company Number: None

PATIENT
  Age: 76 Year
  Sex: Male

DRUGS (1)
  1. APIXABAN [Suspect]
     Active Substance: APIXABAN
     Route: 048
     Dates: start: 20181019, end: 20181116

REACTIONS (7)
  - Anaemia [None]
  - Dialysis [None]
  - Nasopharyngitis [None]
  - Packed red blood cell transfusion [None]
  - Lethargy [None]
  - Cardiac arrest [None]
  - Malaise [None]

NARRATIVE: CASE EVENT DATE: 20181115
